FAERS Safety Report 4646396-7 (Version None)
Quarter: 2005Q2

REPORT INFORMATION
  Report Type: 
  Country: None (occurrence: None)
  Receive Date: 20050427
  Receipt Date: 20040601
  Transmission Date: 20051028
  Serious: No
  Sender: FDA-Public Use
  Company Number: US-GLAXOSMITHKLINE-A0512866A

PATIENT
  Sex: Male

DRUGS (4)
  1. SEREVENT [Suspect]
     Indication: ASTHMA
     Dosage: 1PUFF TWICE PER DAY
     Route: 055
     Dates: start: 20031018
  2. LOPRESSOR [Concomitant]
  3. ALBUTEROL [Concomitant]
  4. PREDNISONE [Concomitant]

REACTIONS (6)
  - ARTHRALGIA [None]
  - COUGH [None]
  - DRUG INEFFECTIVE [None]
  - DYSPHONIA [None]
  - HEADACHE [None]
  - PALPITATIONS [None]
